FAERS Safety Report 5734589-7 (Version None)
Quarter: 2008Q2

REPORT INFORMATION
  Report Type: 
  Country: None (occurrence: None)
  Receive Date: 20080508
  Receipt Date: 20080428
  Transmission Date: 20081010
  Serious: Yes (Hospitalization)
  Sender: FDA-Public Use
  Company Number: 233564J08USA

PATIENT
  Age: 30 Year
  Sex: Female

DRUGS (4)
  1. REBIF [Suspect]
     Indication: MULTIPLE SCLEROSIS
     Dosage: 44 MCG, 3 IN 1 WEEKS, SUBCUTANEOUS
     Route: 058
     Dates: start: 20070518
  2. LITHIUM CARBONATE [Concomitant]
  3. ZOLOFT 9SERTRALINE HYDROCHLORIDE) [Concomitant]
  4. PERPHENAZINE [Concomitant]

REACTIONS (2)
  - ANKLE FRACTURE [None]
  - ROAD TRAFFIC ACCIDENT [None]
